FAERS Safety Report 9274609 (Version 1)
Quarter: 2013Q2

REPORT INFORMATION
  Report Type: Spontaneous
  Country: US (occurrence: None)
  Receive Date: 20130430
  Receipt Date: 20130430
  Transmission Date: 20140414
  Serious: Yes (Other)
  Sender: FDA-Public Use
  Company Number: None

PATIENT
  Age: 52 Year
  Sex: Male
  Weight: 73.4 kg

DRUGS (5)
  1. PEGASYS [Suspect]
     Indication: CHRONIC HEPATITIS C
     Dosage: PEGASYS 180 MCG/0.5ML QW SQ
     Route: 058
     Dates: start: 20130412, end: 20130414
  2. RIBAVIRIN TABS [Concomitant]
  3. BUSPIRONE [Concomitant]
  4. ASA [Concomitant]
  5. VICTRELIS [Concomitant]

REACTIONS (4)
  - Tremor [None]
  - Heart rate increased [None]
  - Injection site reaction [None]
  - Injection site pruritus [None]
